FAERS Safety Report 22525459 (Version 2)
Quarter: 2023Q2

REPORT INFORMATION
  Report Type: Spontaneous
  Country: CA (occurrence: CA)
  Receive Date: 20230606
  Receipt Date: 20230609
  Transmission Date: 20230721
  Serious: Yes (Other)
  Sender: FDA-Public Use
  Company Number: CA-MYLANLABS-2023M1058896

PATIENT
  Age: 32 Year
  Sex: Male

DRUGS (6)
  1. EPINEPHRINE [Suspect]
     Active Substance: EPINEPHRINE
     Indication: Systemic mastocytosis
     Dosage: UNK
     Route: 065
  2. CETIRIZINE [Suspect]
     Active Substance: CETIRIZINE HYDROCHLORIDE
     Indication: Systemic mastocytosis
     Dosage: UNK
     Route: 065
  3. RANITIDINE [Suspect]
     Active Substance: RANITIDINE
     Indication: Systemic mastocytosis
     Dosage: UNK
     Route: 065
  4. CROMOLYN SODIUM [Suspect]
     Active Substance: CROMOLYN SODIUM
     Indication: Systemic mastocytosis
     Dosage: UNK
     Route: 065
  5. MONTELUKAST SODIUM [Suspect]
     Active Substance: MONTELUKAST SODIUM
     Indication: Systemic mastocytosis
     Dosage: UNK
     Route: 065
  6. OMALIZUMAB [Concomitant]
     Active Substance: OMALIZUMAB
     Indication: Systemic mastocytosis
     Dosage: 300 MILLIGRAM
     Route: 065

REACTIONS (1)
  - Drug ineffective [Unknown]
